FAERS Safety Report 13125898 (Version 4)
Quarter: 2018Q1

REPORT INFORMATION
  Report Type: Spontaneous
  Country: JP (occurrence: JP)
  Receive Date: 20170118
  Receipt Date: 20180131
  Transmission Date: 20180508
  Serious: Yes (Other)
  Sender: FDA-Public Use
  Company Number: JP-MYLANLABS-2017M1002454

PATIENT
  Age: 41 Year
  Sex: Female

DRUGS (5)
  1. CLOZAPINE. [Suspect]
     Active Substance: CLOZAPINE
     Indication: SCHIZOPHRENIA
     Dosage: UNK
     Route: 048
  2. CLOZAPINE. [Suspect]
     Active Substance: CLOZAPINE
     Dosage: 200 MG, QD
     Route: 048
     Dates: start: 20150128
  3. CLOZAPINE. [Suspect]
     Active Substance: CLOZAPINE
     Dosage: 125 MG, UNK
     Route: 048
  4. CLOZAPINE. [Suspect]
     Active Substance: CLOZAPINE
     Dosage: 225 MG, UNK
     Route: 048
  5. CLOZAPINE. [Suspect]
     Active Substance: CLOZAPINE
     Dosage: UNK
     Route: 048

REACTIONS (4)
  - Decreased activity [Recovering/Resolving]
  - Tobacco interaction [Unknown]
  - Sedation complication [Recovering/Resolving]
  - Drug effect decreased [Recovering/Resolving]

NARRATIVE: CASE EVENT DATE: 20150320
